FAERS Safety Report 6519528-3 (Version None)
Quarter: 2009Q4

REPORT INFORMATION
  Report Type: 
  Country: None (occurrence: None)
  Receive Date: 20091228
  Receipt Date: 20091215
  Transmission Date: 20100525
  Serious: Yes (Other)
  Sender: FDA-Public Use
  Company Number: RU-PFIZER INC-2009299180

PATIENT
  Age: 8 Year

DRUGS (2)
  1. ZYVOX [Suspect]
     Indication: PNEUMONIA
     Dosage: UNK
     Route: 042
     Dates: start: 20091116, end: 20091116
  2. ZYVOX [Suspect]
     Indication: INFLUENZA

REACTIONS (4)
  - ANAPHYLACTIC REACTION [None]
  - CYANOSIS [None]
  - EXOPHTHALMOS [None]
  - PSYCHOMOTOR HYPERACTIVITY [None]
